FAERS Safety Report 15691722 (Version 1)
Quarter: 2018Q4

REPORT INFORMATION
  Report Type: Report from Study
  Country: US (occurrence: US)
  Receive Date: 20181205
  Receipt Date: 20181205
  Transmission Date: 20190205
  Serious: Yes (Other)
  Sender: FDA-Public Use
  Company Number: US-BAUSCH-BL-2018-023838

PATIENT
  Sex: Male

DRUGS (2)
  1. SYPRINE [Suspect]
     Active Substance: TRIENTINE HYDROCHLORIDE
     Dosage: 4 CAPSULES DAILY IN THE MORNING
     Route: 048
     Dates: start: 2017
  2. SYPRINE [Suspect]
     Active Substance: TRIENTINE HYDROCHLORIDE
     Indication: HEPATO-LENTICULAR DEGENERATION
     Dosage: START DATE: AT LEAST 20 YEARS; FOUR CAPSULES BY MOUTH IN THE MORNING DAILY.
     Route: 048
     Dates: end: 2017

REACTIONS (2)
  - Diabetes mellitus [Not Recovered/Not Resolved]
  - Insurance issue [Recovered/Resolved]

NARRATIVE: CASE EVENT DATE: 2017
